FAERS Safety Report 5394783-4 (Version None)
Quarter: 2007Q3

REPORT INFORMATION
  Report Type: 
  Country: None (occurrence: None)
  Receive Date: 20070723
  Receipt Date: 20070712
  Transmission Date: 20080115
  Serious: Yes (Hospitalization, Disabling)
  Sender: FDA-Public Use
  Company Number: US-PFIZER INC-2007058426

PATIENT
  Sex: Female
  Weight: 86.2 kg

DRUGS (5)
  1. CELEBREX [Suspect]
     Indication: ARTHRITIS
     Dates: start: 20020306, end: 20040510
  2. IBUPROFEN [Concomitant]
  3. ACETYLSALICYLIC ACID SRT [Concomitant]
  4. DARVOCET [Concomitant]
  5. DEMEROL [Concomitant]

REACTIONS (4)
  - AMNESIA [None]
  - CEREBROVASCULAR ACCIDENT [None]
  - COMA [None]
  - RENAL FAILURE [None]
